FAERS Safety Report 9772406 (Version 2)
Quarter: 2014Q1

REPORT INFORMATION
  Report Type: Spontaneous
  Country: FR (occurrence: FR)
  Receive Date: 20131219
  Receipt Date: 20140119
  Transmission Date: 20141002
  Serious: Yes (Other)
  Sender: FDA-Public Use
  Company Number: FR-ASTRAZENECA-2013SE91297

PATIENT
  Age: 26664 Day
  Sex: Male
  Weight: 71 kg

DRUGS (9)
  1. CRESTOR [Suspect]
     Indication: CARDIOVASCULAR EVENT PROPHYLAXIS
     Route: 048
     Dates: start: 20091010
  2. EZETROL [Suspect]
     Indication: CARDIOVASCULAR EVENT PROPHYLAXIS
     Route: 048
     Dates: start: 20091030
  3. AMIODARONE [Concomitant]
     Indication: CARDIAC FAILURE
     Route: 048
  4. KARDEGIC [Concomitant]
     Indication: CORONARY ARTERY DISEASE
     Route: 048
     Dates: start: 1995
  5. PREVISCAN [Concomitant]
     Indication: CORONARY ARTERY DISEASE
     Route: 048
  6. TEGRETOL [Concomitant]
     Indication: BIPOLAR DISORDER
     Route: 048
     Dates: start: 2009
  7. TERCIAN [Concomitant]
     Indication: BIPOLAR DISORDER
     Route: 048
     Dates: start: 2009
  8. SEROPLEX [Concomitant]
     Indication: BIPOLAR DISORDER
     Route: 048
     Dates: start: 2009
  9. OGASTRO [Concomitant]
     Indication: HAEMORRHAGIC EROSIVE GASTRITIS
     Route: 048

REACTIONS (1)
  - Muscle strain [Recovering/Resolving]
